FAERS Safety Report 7760013-9 (Version None)
Quarter: 2011Q3

REPORT INFORMATION
  Report Type: 
  Country: None (occurrence: None)
  Receive Date: 20110919
  Receipt Date: 20110908
  Transmission Date: 20111222
  Serious: Yes (Hospitalization, Other)
  Sender: FDA-Public Use
  Company Number: US-BAYER-2011-014846

PATIENT
  Age: 44 Year
  Sex: Female
  Weight: 63.492 kg

DRUGS (7)
  1. ALLEGRA [Concomitant]
  2. FLONASE [Concomitant]
  3. METRONIDAZOLE [Concomitant]
  4. YASMIN [Suspect]
  5. YASMIN [Suspect]
     Indication: PREMENSTRUAL SYNDROME
     Dosage: UNK
     Dates: start: 20060226, end: 20081101
  6. SKELAXLN [Concomitant]
  7. YASMIN [Suspect]
     Indication: MENSTRUATION IRREGULAR

REACTIONS (5)
  - PAIN [None]
  - ABDOMINAL PAIN [None]
  - CHOLECYSTITIS CHRONIC [None]
  - CHOLECYSTITIS ACUTE [None]
  - CHOLELITHIASIS [None]
